FAERS Safety Report 10208562 (Version 1)
Quarter: 2014Q2

REPORT INFORMATION
  Report Type: Spontaneous
  Country: TR (occurrence: TR)
  Receive Date: 20140530
  Receipt Date: 20140530
  Transmission Date: 20141212
  Serious: Yes (Hospitalization)
  Sender: FDA-Public Use
  Company Number: TR-WATSON-2014-11195

PATIENT
  Age: 20 Year
  Sex: Female

DRUGS (1)
  1. METFORMIN (UNKNOWN) [Suspect]
     Indication: SUICIDE ATTEMPT
     Dosage: 40 G, SINGLE
     Route: 065

REACTIONS (2)
  - Suicide attempt [Recovered/Resolved]
  - Intentional overdose [Recovered/Resolved]
